FAERS Safety Report 8619639-2 (Version None)
Quarter: 2012Q3

REPORT INFORMATION
  Report Type: 
  Country: None (occurrence: None)
  Receive Date: 20120810
  Receipt Date: 20120725
  Transmission Date: 20120928
  Serious: Yes (Hospitalization, Other)
  Sender: FDA-Public Use
  Company Number: 2012MA009251

PATIENT
  Age: 32 Year
  Sex: Female

DRUGS (1)
  1. FEVERALL [Suspect]
     Indication: OVERDOSE
     Dosage: X2; PO
     Route: 048

REACTIONS (12)
  - PUPIL FIXED [None]
  - PANCYTOPENIA [None]
  - ASPARTATE AMINOTRANSFERASE INCREASED [None]
  - INTERNATIONAL NORMALISED RATIO INCREASED [None]
  - PULMONARY OEDEMA [None]
  - HYPERAMYLASAEMIA [None]
  - COMA [None]
  - OVERDOSE [None]
  - METABOLIC ACIDOSIS [None]
  - RENAL FAILURE ACUTE [None]
  - TOXICITY TO VARIOUS AGENTS [None]
  - HYPERGLYCAEMIA [None]
